FAERS Safety Report 15164227 (Version 1)
Quarter: 2018Q3

REPORT INFORMATION
  Report Type: Spontaneous
  Country: US (occurrence: US)
  Receive Date: 20180719
  Receipt Date: 20180719
  Transmission Date: 20181010
  Serious: No
  Sender: FDA-Public Use
  Company Number: US-PFIZER INC-2018287974

PATIENT
  Age: 79 Year
  Sex: Female

DRUGS (2)
  1. NORCO [Interacting]
     Active Substance: ACETAMINOPHEN\HYDROCODONE BITARTRATE
     Indication: PAIN
     Dosage: UNK (HYDROCODONE BITARTRATE 10 MG : PARACETAMOL 325 MG) (UP TO 6 TIMES A DAY)
     Route: 048
  2. XELJANZ [Suspect]
     Active Substance: TOFACITINIB CITRATE
     Indication: RHEUMATOID ARTHRITIS
     Dosage: 5 MG, 1X/DAY (1 PILL/TABLET)
     Route: 048
     Dates: start: 201807, end: 201807

REACTIONS (4)
  - Dizziness [Unknown]
  - Malaise [Unknown]
  - Nervousness [Recovered/Resolved]
  - Drug interaction [Unknown]

NARRATIVE: CASE EVENT DATE: 201807
